FAERS Safety Report 24668855 (Version 5)
Quarter: 2025Q1

REPORT INFORMATION
  Report Type: Spontaneous
  Country: JP (occurrence: JP)
  Receive Date: 20241127
  Receipt Date: 20250321
  Transmission Date: 20250408
  Serious: Yes (Hospitalization, Disabling)
  Sender: REGENERON
  Company Number: JP-BAYER-2024A166970

PATIENT
  Age: 88 Year
  Sex: Female

DRUGS (3)
  1. EYLEA [Suspect]
     Active Substance: AFLIBERCEPT
     Indication: Age-related macular degeneration
     Route: 031
  2. EYLEA [Suspect]
     Active Substance: AFLIBERCEPT
     Route: 031
     Dates: start: 20241106, end: 20241106
  3. UNSPECIFIED INGREDIENT [Concomitant]
     Active Substance: UNSPECIFIED INGREDIENT
     Indication: Intra-ocular injection

REACTIONS (5)
  - Proliferative vitreoretinopathy [Recovered/Resolved with Sequelae]
  - Blindness [Recovered/Resolved with Sequelae]
  - Necrotising retinitis [Not Recovered/Not Resolved]
  - Endophthalmitis [Recovered/Resolved with Sequelae]
  - Visual acuity reduced [Recovered/Resolved with Sequelae]

NARRATIVE: CASE EVENT DATE: 20241107
